FAERS Safety Report 15029042 (Version 1)
Quarter: 2018Q2

REPORT INFORMATION
  Report Type: Spontaneous
  Country: CA (occurrence: US)
  Receive Date: 20180619
  Receipt Date: 20180619
  Transmission Date: 20180711
  Serious: Yes (Other)
  Sender: FDA-Public Use
  Company Number: CA-BAYER-2018-080839

PATIENT
  Sex: Female

DRUGS (1)
  1. MIRENA [Suspect]
     Active Substance: LEVONORGESTREL
     Dosage: 20 MCG/24HR, CONT
     Route: 015
     Dates: start: 2009

REACTIONS (5)
  - Device use issue [None]
  - Device difficult to use [None]
  - Amenorrhoea [None]
  - Device dislocation [None]
  - Adverse drug reaction [None]

NARRATIVE: CASE EVENT DATE: 2009
